FAERS Safety Report 21669112 (Version 1)
Quarter: 2022Q4

REPORT INFORMATION
  Report Type: Spontaneous
  Country: US (occurrence: None)
  Receive Date: 20221130
  Receipt Date: 20221130
  Transmission Date: 20230113
  Serious: Yes (Hospitalization)
  Sender: FDA-Public Use
  Company Number: None

PATIENT
  Age: 60 Year
  Sex: Male
  Weight: 112.99 kg

DRUGS (17)
  1. LENALIDOMIDE [Suspect]
     Active Substance: LENALIDOMIDE
     Indication: Plasma cell myeloma
     Dosage: OTHER FREQUENCY : 2W,1WOFF;?
     Route: 048
  2. ACYCLOVIR [Concomitant]
     Active Substance: ACYCLOVIR
  3. ASPIRIN [Concomitant]
  4. ATORVASTATIN [Concomitant]
  5. DEXAMETHASONE [Concomitant]
  6. FUROSEMIDE [Concomitant]
  7. HYDROXYZINE [Concomitant]
  8. LEVOFLOXACIN [Concomitant]
  9. LOPERAMIDE [Concomitant]
  10. METFORMIN [Concomitant]
  11. MULTIVITAMIN [Concomitant]
  12. OMEGA 3 [Concomitant]
     Active Substance: CAPSAICIN
  13. PROZAC [Concomitant]
  14. QUINAPRIL [Concomitant]
  15. VITAMIN C [Concomitant]
  16. VELCADE [Concomitant]
  17. VITAMIN B12 [Concomitant]
     Active Substance: CYANOCOBALAMIN

REACTIONS (2)
  - Cardiac failure [None]
  - Therapy interrupted [None]
